FAERS Safety Report 18694549 (Version 1)
Quarter: 2020Q4

REPORT INFORMATION
  Report Type: Spontaneous
  Country: US (occurrence: US)
  Receive Date: 20201231
  Receipt Date: 20201231
  Transmission Date: 20210114
  Serious: No
  Sender: FDA-Public Use
  Company Number: None

PATIENT
  Age: 67 Year
  Sex: Male

DRUGS (1)
  1. VENETOCLAX. [Suspect]
     Active Substance: VENETOCLAX
     Indication: CHRONIC LYMPHOCYTIC LEUKAEMIA
     Route: 048

REACTIONS (6)
  - Alanine aminotransferase increased [None]
  - Fatigue [None]
  - Aspartate aminotransferase increased [None]
  - Blood bilirubin increased [None]
  - Drug-induced liver injury [None]
  - Liver injury [None]

NARRATIVE: CASE EVENT DATE: 20200928
